FAERS Safety Report 8928032 (Version 1)
Quarter: 2012Q4

REPORT INFORMATION
  Report Type: Spontaneous
  Country: US (occurrence: None)
  Receive Date: 20121126
  Receipt Date: 20121126
  Transmission Date: 20130627
  Serious: Yes (Other)
  Sender: FDA-Public Use
  Company Number: None

PATIENT
  Age: 34 Year
  Sex: Female
  Weight: 104.33 kg

DRUGS (2)
  1. MIRENA IUD [Suspect]
     Indication: BIRTH CONTROL
     Dates: start: 201104
  2. MIRENA IUD [Suspect]
     Indication: MENSTRUAL CYCLE MANAGEMENT
     Dates: start: 201104

REACTIONS (5)
  - Malaise [None]
  - Nausea [None]
  - Affective disorder [None]
  - Anxiety [None]
  - Menorrhagia [None]
